APPROVED DRUG PRODUCT: QUINAGLUTE
Active Ingredient: QUINIDINE GLUCONATE
Strength: 324MG **Federal Register determination that product was not discontinued or withdrawn for safety or effectiveness reasons**
Dosage Form/Route: TABLET, EXTENDED RELEASE;ORAL
Application: N016647 | Product #001
Applicant: BAYER HEALTHCARE PHARMACEUTICALS INC
Approved: Approved Prior to Jan 1, 1982 | RLD: Yes | RS: No | Type: DISCN